FAERS Safety Report 14397078 (Version 1)
Quarter: 2018Q1

REPORT INFORMATION
  Report Type: Spontaneous
  Country: US (occurrence: US)
  Receive Date: 20180116
  Receipt Date: 20180116
  Transmission Date: 20180509
  Serious: No
  Sender: FDA-Public Use
  Company Number: US-ALLERGAN-1747214US

PATIENT
  Age: 78 Year
  Sex: Male

DRUGS (1)
  1. BOTOX [Suspect]
     Active Substance: ONABOTULINUMTOXINA
     Indication: HEADACHE
     Dosage: UNK, SINGLE
     Route: 030
     Dates: start: 201103, end: 201103

REACTIONS (2)
  - Off label use [Unknown]
  - Skin wrinkling [Recovering/Resolving]

NARRATIVE: CASE EVENT DATE: 201103
